FAERS Safety Report 8051935-2 (Version None)
Quarter: 2012Q1

REPORT INFORMATION
  Report Type: 
  Country: None (occurrence: None)
  Receive Date: 20120111
  Receipt Date: 20111228
  Transmission Date: 20120608
  Serious: Yes (Hospitalization, Other)
  Sender: FDA-Public Use
  Company Number: 1000021202

PATIENT
  Age: 71 Year
  Sex: Male
  Weight: 90 kg

DRUGS (21)
  1. PRAVASTATIN [Concomitant]
  2. MIRTAZIPIN (MIRTAZIPINE) [Concomitant]
  3. VERAPAMIL [Concomitant]
  4. VALSARTAN [Concomitant]
  5. ALBUTEROL SULFATE [Concomitant]
  6. PANTOPRAZOLE [Concomitant]
  7. BUDESONIDE WITH FORMOTEROL FUMARATE (BUDESONIDE, FORMOTEROL FUMARATE) [Concomitant]
  8. DIGITOXIN TAB [Concomitant]
  9. RAMIPRIL [Concomitant]
  10. ROFLUMILAST (ROFLUMILAST) (TABLETS) [Suspect]
     Indication: CHRONIC OBSTRUCTIVE PULMONARY DISEASE
     Dosage: 500 MCG, ORAL
     Route: 048
     Dates: start: 20110223, end: 20110517
  11. ROFLUMILAST (ROFLUMILAST) (TABLETS) [Suspect]
     Indication: CHRONIC OBSTRUCTIVE PULMONARY DISEASE
     Dosage: 500 MCG, ORAL
     Route: 048
     Dates: start: 20110602, end: 20111017
  12. ALLOPURINOL [Concomitant]
  13. TIOTROPIUM BROMIDE (TIOTROPIUM BROMIDE) [Concomitant]
  14. LEVEMIR [Concomitant]
  15. NOVORAPID (INSULIN ASPART) (INSULIN ASPART) [Concomitant]
  16. DIGITOXIN TAB [Concomitant]
  17. FUROSEMIDE [Concomitant]
  18. SPIRIVA (TIOTROPIUM BROMIDE) (TIOTROPIUM BROMIDE) [Concomitant]
  19. VIANI (SERETIDE) (SERETIDE) [Concomitant]
  20. MARCUMAR [Concomitant]
  21. PHENPROCOUMON (PHENPROCOUMON) [Concomitant]

REACTIONS (12)
  - DIZZINESS [None]
  - ANAEMIA [None]
  - DIVERTICULUM INTESTINAL [None]
  - URINARY TRACT INFECTION [None]
  - CHEST DISCOMFORT [None]
  - COLONIC POLYP [None]
  - URINARY TRACT INFECTION ENTEROCOCCAL [None]
  - DYSPNOEA [None]
  - GASTROINTESTINAL HAEMORRHAGE [None]
  - MELAENA [None]
  - DECREASED APPETITE [None]
  - ASTHENIA [None]
